FAERS Safety Report 21384529 (Version 1)
Quarter: 2022Q3

REPORT INFORMATION
  Report Type: Spontaneous
  Country: JP (occurrence: JP)
  Receive Date: 20220928
  Receipt Date: 20220928
  Transmission Date: 20221026
  Serious: Yes (Hospitalization, Disabling, Other)
  Sender: FDA-Public Use
  Company Number: JP-BAYER-2022A133186

PATIENT
  Age: 82 Year
  Sex: Female

DRUGS (2)
  1. EYLEA [Suspect]
     Active Substance: AFLIBERCEPT
     Indication: Age-related macular degeneration
     Dosage: BOTH EYES, ONCE A MONTH, AFLIBERCEPT 2MG ONCE (0.05ML), SOLUTION FOR INJECTION, STRENGTH: 40 MG/ML
     Route: 031
     Dates: end: 20210915
  2. EYLEA [Suspect]
     Active Substance: AFLIBERCEPT
     Indication: Choroidal neovascularisation

REACTIONS (3)
  - Corneal opacity [Not Recovered/Not Resolved]
  - Visual impairment [Not Recovered/Not Resolved]
  - Endophthalmitis [Not Recovered/Not Resolved]

NARRATIVE: CASE EVENT DATE: 20210801
